FAERS Safety Report 10193444 (Version 1)
Quarter: 2014Q2

REPORT INFORMATION
  Report Type: Spontaneous
  Country: US (occurrence: US)
  Receive Date: 20140524
  Receipt Date: 20140524
  Transmission Date: 20141212
  Serious: No
  Sender: FDA-Public Use
  Company Number: US-SA-2013SA128196

PATIENT
  Age: 63 Year
  Sex: Female
  Weight: 145.14 kg

DRUGS (8)
  1. LANTUS [Suspect]
     Indication: TYPE 2 DIABETES MELLITUS
     Route: 051
     Dates: start: 201308
  2. APIDRA [Suspect]
     Indication: TYPE 2 DIABETES MELLITUS
     Route: 058
     Dates: start: 201308
  3. DRUG USED IN DIABETES [Concomitant]
     Indication: DIABETES MELLITUS
     Dosage: DOSE: 2 PILLS FOR DIABETES
     Route: 065
  4. TORSEMIDE [Concomitant]
     Route: 065
  5. PLAVIX [Concomitant]
     Indication: STENT PLACEMENT
     Route: 065
  6. SPIRONOLACTONE [Concomitant]
     Route: 065
  7. NEXIUM [Concomitant]
     Indication: GASTROOESOPHAGEAL REFLUX DISEASE
     Route: 065
  8. REQUIP [Concomitant]
     Indication: MUSCLE SPASMS
     Route: 065

REACTIONS (3)
  - Malaise [Not Recovered/Not Resolved]
  - Nasopharyngitis [Not Recovered/Not Resolved]
  - Dysphonia [Not Recovered/Not Resolved]
